FAERS Safety Report 6462518-X (Version None)
Quarter: 2009Q4

REPORT INFORMATION
  Report Type: 
  Country: None (occurrence: None)
  Receive Date: 20091130
  Receipt Date: 20091117
  Transmission Date: 20100525
  Serious: Yes (Disabling, Other)
  Sender: FDA-Public Use
  Company Number: CA-BAYER-200915684BCC

PATIENT
  Age: 55 Year
  Sex: Male
  Weight: 82 kg

DRUGS (1)
  1. LOTRIDERM CREAM [Suspect]
     Indication: ANAL PRURITUS
     Route: 065
     Dates: start: 20061001, end: 20090408

REACTIONS (8)
  - ABNORMAL BEHAVIOUR [None]
  - ADJUSTMENT DISORDER [None]
  - AGGRESSION [None]
  - ANTISOCIAL BEHAVIOUR [None]
  - COGNITIVE DISORDER [None]
  - DISABILITY [None]
  - FRONTOTEMPORAL DEMENTIA [None]
  - PERSONALITY CHANGE [None]
